FAERS Safety Report 5771583-4 (Version None)
Quarter: 2008Q2

REPORT INFORMATION
  Report Type: 
  Country: None (occurrence: None)
  Receive Date: 20080611
  Receipt Date: 20080526
  Transmission Date: 20081010
  Serious: Yes (Life-Threatening)
  Sender: FDA-Public Use
  Company Number: 8029895

PATIENT
  Age: 55 Year
  Sex: Male

DRUGS (4)
  1. KEPPRA [Suspect]
     Dosage: 1500 MG 3/D
  2. KEPPRA [Suspect]
     Dosage: 1500 MG 2/D
  3. KEPPRA [Suspect]
     Dosage: 500 MG 2/D
  4. VALPROATE SODIUM [Suspect]

REACTIONS (3)
  - AMMONIA INCREASED [None]
  - DEPRESSED LEVEL OF CONSCIOUSNESS [None]
  - MENTAL DISORDER [None]
